FAERS Safety Report 13872724 (Version 1)
Quarter: 2017Q3

REPORT INFORMATION
  Report Type: Spontaneous
  Country: US (occurrence: US)
  Receive Date: 20170816
  Receipt Date: 20170816
  Transmission Date: 20171127
  Serious: Yes (Hospitalization)
  Sender: FDA-Public Use
  Company Number: US-PFIZER INC-2017352666

PATIENT
  Age: 64 Year
  Sex: Female

DRUGS (1)
  1. RAPAMUNE [Suspect]
     Active Substance: SIROLIMUS
     Dosage: 1.5 MG, 1X/DAY
     Route: 048

REACTIONS (2)
  - Pneumonia [Recovering/Resolving]
  - Diabetic complication [Unknown]

NARRATIVE: CASE EVENT DATE: 2017
